FAERS Safety Report 4273751-X (Version None)
Quarter: 2004Q1

REPORT INFORMATION
  Report Type: 
  Country: None (occurrence: None)
  Receive Date: 20040114
  Receipt Date: 20040108
  Transmission Date: 20041129
  Serious: Yes (Hospitalization)
  Sender: FDA-Public Use
  Company Number: TCI2003A02799

PATIENT
  Age: 83 Year
  Sex: Male

DRUGS (7)
  1. TAKEPRON OD TABLETS 30 (LANSOPRAZOLE) [Suspect]
     Indication: GASTRIC ULCER
     Dosage: PRIOR US OF EQUIVALENT PRODUCT: YES , 30 MG (30 MG, 1 IN 1 D)
     Route: 048
     Dates: start: 20030705, end: 20030718
  2. SUCRALFATE [Concomitant]
  3. ALLOID G (SODIUM ALGINATE) [Concomitant]
  4. DANTRIUM [Concomitant]
  5. UNSYN (UNACID) [Concomitant]
  6. MEROPEN (MEROPENEM) [Concomitant]
  7. HABEKACIN (ARBEKACIN) [Concomitant]

REACTIONS (10)
  - ANOREXIA [None]
  - ENTEROCOCCAL INFECTION [None]
  - GASTRIC ULCER [None]
  - HAEMOGLOBIN DECREASED [None]
  - INFLAMMATION [None]
  - INTERSTITIAL LUNG DISEASE [None]
  - PLEURAL EFFUSION [None]
  - PRODUCTIVE COUGH [None]
  - PYREXIA [None]
  - STAPHYLOCOCCAL INFECTION [None]
